FAERS Safety Report 4340925-9 (Version None)
Quarter: 2004Q2

REPORT INFORMATION
  Report Type: 
  Country: None (occurrence: None)
  Receive Date: 20040413
  Receipt Date: 20040407
  Transmission Date: 20050107
  Serious: Yes (Hospitalization)
  Sender: FDA-Public Use
  Company Number: A001-319-613

PATIENT
  Age: 77 Year
  Sex: Male
  Weight: 76 kg

DRUGS (9)
  1. DONEPEZIL HCL [Suspect]
     Indication: VASCULAR DEMENTIA
     Dosage: 5 MG, 1 IN 1 D, ORAL
     Route: 048
     Dates: start: 20031222, end: 20040325
  2. PERINDOPRIL (PERINDOPRIL) [Concomitant]
  3. ISOSORBIDE MONONITRATE [Concomitant]
  4. FUROSEMIDE [Concomitant]
  5. WARFARIN SODIUM [Concomitant]
  6. DIGOXIN [Concomitant]
  7. VENLAFAXINE (VENLAFAXINE) [Concomitant]
  8. METOPROLOL (METOPROLOL) [Concomitant]
  9. PRAZOSIN GITS [Concomitant]

REACTIONS (4)
  - ASTHENIA [None]
  - BALANCE DISORDER [None]
  - CARDIAC OUTPUT DECREASED [None]
  - SICK SINUS SYNDROME [None]
